FAERS Safety Report 8082019-5 (Version None)
Quarter: 2012Q1

REPORT INFORMATION
  Report Type: 
  Country: None (occurrence: None)
  Receive Date: 20120130
  Receipt Date: 20120121
  Transmission Date: 20120608
  Serious: Yes (Disabling, Other)
  Sender: FDA-Public Use
  Company Number: PHHY2012BR006173

PATIENT
  Age: 79 Year
  Sex: Female

DRUGS (3)
  1. CLONAZEPAM [Concomitant]
  2. SIMVASTATIN [Suspect]
     Route: 048
  3. MEMANTINE HYDROCHLORIDE [Concomitant]

REACTIONS (5)
  - TYMPANIC MEMBRANE DISORDER [None]
  - PAIN IN EXTREMITY [None]
  - DEAFNESS [None]
  - BLINDNESS [None]
  - THROMBOSIS [None]
